FAERS Safety Report 13007622 (Version 2)
Quarter: 2017Q1

REPORT INFORMATION
  Report Type: Spontaneous
  Country: US (occurrence: US)
  Receive Date: 20161207
  Receipt Date: 20170116
  Transmission Date: 20170428
  Serious: No
  Sender: FDA-Public Use
  Company Number: US-GLAXOSMITHKLINE-US2016GSK180476

PATIENT
  Sex: Female

DRUGS (3)
  1. ADVAIR DISKUS [Suspect]
     Active Substance: FLUTICASONE PROPIONATE\SALMETEROL XINAFOATE
     Indication: ASTHMA
     Dosage: 1 PUFF(S), 1D
     Dates: start: 1997
  2. LISINOPRIL. [Concomitant]
     Active Substance: LISINOPRIL
  3. ADVAIR DISKUS [Suspect]
     Active Substance: FLUTICASONE PROPIONATE\SALMETEROL XINAFOATE
     Dosage: 1 PUFF(S), BID PRN

REACTIONS (10)
  - Drug ineffective [Unknown]
  - Feeling abnormal [Unknown]
  - Chest discomfort [Unknown]
  - Fatigue [Unknown]
  - Adverse drug reaction [Unknown]
  - Drug dose omission [Unknown]
  - Off label use [Unknown]
  - Underdose [Unknown]
  - Dyspnoea [Unknown]
  - Product quality issue [Unknown]
